FAERS Safety Report 4677627-5 (Version None)
Quarter: 2005Q2

REPORT INFORMATION
  Report Type: 
  Country: None (occurrence: None)
  Receive Date: 20050526
  Receipt Date: 20050526
  Transmission Date: 20051028
  Serious: Yes (Other)
  Sender: FDA-Public Use
  Company Number: None

PATIENT
  Age: 17 Year
  Sex: Female
  Weight: 51.7101 kg

DRUGS (2)
  1. ADDERALL 10 [Suspect]
     Indication: ATTENTION DEFICIT/HYPERACTIVITY DISORDER
     Dosage: ADDERALL XR 10 - 20
     Dates: start: 20050210, end: 20050401
  2. ORTHO EVRA [Suspect]
     Indication: CONTRACEPTION
     Dosage: ORTHO EVRA ? DOSE
     Dates: start: 20050201, end: 20050401

REACTIONS (3)
  - DRUG DOSE OMISSION [None]
  - DRUG EFFECT DECREASED [None]
  - UNINTENDED PREGNANCY [None]
